FAERS Safety Report 8956137 (Version 2)
Quarter: 2012Q4

REPORT INFORMATION
  Report Type: 
  Country: US (occurrence: US)
  Receive Date: 20121210
  Receipt Date: 20121221
  Transmission Date: 20130627
  Serious: Yes (Hospitalization)
  Sender: FDA-Public Use
  Company Number: PHHO2012US017573

PATIENT
  Age: 68 Year
  Sex: Male
  Weight: 88.7 kg

DRUGS (5)
  1. METOLAZONE [Suspect]
     Indication: CARDIAC FAILURE CONGESTIVE
     Dosage: 5 mg, BID
     Route: 048
     Dates: start: 20120925, end: 20121129
  2. BLINDED ENALAPRIL [Suspect]
     Indication: CARDIAC FAILURE CHRONIC
     Dosage: Code not broken
     Route: 048
     Dates: start: 20120308, end: 20120708
  3. BLINDED LCZ696 [Suspect]
     Indication: CARDIAC FAILURE CHRONIC
     Dosage: Code not broken
     Route: 048
     Dates: start: 20120308, end: 20120708
  4. BLINDED NO TREATMENT RECEIVED [Suspect]
     Indication: CARDIAC FAILURE CHRONIC
     Dosage: Code not broken
     Route: 048
     Dates: start: 20120308, end: 20120708
  5. TORASEMIDE [Suspect]
     Indication: CARDIAC FAILURE CONGESTIVE
     Dosage: 20 mg, BID
     Route: 048
     Dates: start: 20120220

REACTIONS (2)
  - Renal failure acute [Recovered/Resolved]
  - Gastroenteritis [Recovered/Resolved]
